FAERS Safety Report 11336219 (Version 1)
Quarter: 2015Q3

REPORT INFORMATION
  Report Type: Spontaneous
  Country: FR (occurrence: FR)
  Receive Date: 20150804
  Receipt Date: 20150804
  Transmission Date: 20151125
  Serious: Yes (Hospitalization)
  Sender: FDA-Public Use
  Company Number: FR-GUERBET LLC-1040912

PATIENT
  Age: 48 Year
  Sex: Female

DRUGS (3)
  1. LOVENOX [Concomitant]
     Active Substance: ENOXAPARIN SODIUM
     Dates: start: 20150402, end: 20150402
  2. MIDAZOLAM [Concomitant]
     Active Substance: MIDAZOLAM\MIDAZOLAM HYDROCHLORIDE
     Dates: start: 20150402, end: 20150402
  3. HEXABRIX [Suspect]
     Active Substance: IOXAGLATE MEGLUMINE\IOXAGLATE SODIUM
     Indication: ARTERIOGRAM CORONARY
     Route: 042
     Dates: start: 20150402, end: 20150402

REACTIONS (7)
  - Metabolic encephalopathy [None]
  - Mutism [None]
  - Agitation [None]
  - Anxiety [None]
  - Psychomotor retardation [None]
  - Aphasia [None]
  - Hemiparesis [None]

NARRATIVE: CASE EVENT DATE: 20150402
